FAERS Safety Report 4485273-1 (Version None)
Quarter: 2004Q4

REPORT INFORMATION
  Report Type: 
  Country: None (occurrence: None)
  Receive Date: 20041022
  Receipt Date: 20041022
  Transmission Date: 20050328
  Serious: No
  Sender: FDA-Public Use
  Company Number: None

PATIENT
  Age: 44 Year
  Sex: Female
  Weight: 68.0396 kg

DRUGS (1)
  1. ACCUTANE 20 MG BERTEK/AMESTEEM [Suspect]
     Indication: ACNE
     Dosage: 20 MG
     Dates: start: 20000605, end: 20041016

REACTIONS (1)
  - COLON CANCER [None]
